FAERS Safety Report 9785405 (Version 2)
Quarter: 2014Q1

REPORT INFORMATION
  Report Type: Spontaneous
  Country: IT (occurrence: IT)
  Receive Date: 20131227
  Receipt Date: 20140123
  Transmission Date: 20141002
  Serious: Yes (Hospitalization)
  Sender: FDA-Public Use
  Company Number: IT-ASTRAZENECA-2013SE93226

PATIENT
  Age: 19729 Day
  Sex: Male

DRUGS (8)
  1. BRILIQUE [Suspect]
     Indication: MYOCARDIAL ISCHAEMIA
     Route: 048
     Dates: start: 20131101, end: 20131111
  2. RAMIPRIL [Concomitant]
     Route: 048
  3. METFORMIN [Concomitant]
     Route: 048
  4. CARDICOR [Concomitant]
     Route: 048
  5. NORVASC [Concomitant]
     Route: 048
  6. TORVAST [Concomitant]
     Route: 048
  7. CARDIOASPIRIN [Concomitant]
     Route: 048
  8. MODURETIC [Concomitant]
     Dosage: 5MG+50MG, UNKNOWN FREQUENCY

REACTIONS (6)
  - Anaemia [Recovering/Resolving]
  - Asthenia [Unknown]
  - Haematemesis [Recovering/Resolving]
  - Melaena [Recovering/Resolving]
  - Presyncope [Recovering/Resolving]
  - Coronary artery disease [Unknown]
